FAERS Safety Report 17077254 (Version 4)
Quarter: 2020Q2

REPORT INFORMATION
  Report Type: Report from Study
  Country: NL (occurrence: NL)
  Receive Date: 20191126
  Receipt Date: 20200408
  Transmission Date: 20200713
  Serious: Yes (Other)
  Sender: FDA-Public Use
  Company Number: NL-AMGEN-NLDSL2019053706

PATIENT
  Age: 69 Year
  Sex: Female

DRUGS (15)
  1. HYALURON [HYALURONIC ACID] [Concomitant]
     Active Substance: HYALURONIC ACID
     Dosage: UNK, AS NECESSARY
  2. SALBUTAMOL [Concomitant]
     Active Substance: ALBUTEROL
     Dosage: 200UG/DO 60DO DISKUS WHEN NEEDED 1-4XD 1INH
     Dates: start: 20190617
  3. AMOXICILLINE [AMOXICILLIN] [Concomitant]
     Active Substance: AMOXICILLIN
     Dosage: 500 MILLIGRAM, 3D1C,
  4. CALCIUM CARBONATE W/COLECALCIFEROL [Concomitant]
     Active Substance: CALCIUM CARBONATE\CHOLECALCIFEROL
     Dosage: 2,5G/880IE (1000MG CA), QD
     Dates: start: 20190516
  5. ESCITALOPRAM [Concomitant]
     Active Substance: ESCITALOPRAM OXALATE
     Dosage: 10 MILLIGRAM,KEER PER DAG 1 TABLET
     Dates: start: 20190301
  6. CODEINE [Concomitant]
     Active Substance: CODEINE
     Dosage: 20 MILLIGRAM, 1-3XD 1T
  7. BUDESONIDA, FORMOTEROL [Concomitant]
     Active Substance: BUDESONIDE\FORMOTEROL FUMARATE
     Dosage: 200/6UG/DO (=160/4,5UG) 120DOTUR 2XD 1PUFF
  8. XGEVA [Suspect]
     Active Substance: DENOSUMAB
     Dosage: UNK
     Route: 065
  9. XGEVA [Suspect]
     Active Substance: DENOSUMAB
     Indication: PROPHYLAXIS
     Dosage: 120 MILLIGRAM PER MILLILITRE, Q4WK
     Route: 065
     Dates: start: 20190402
  10. VALACICLOVIR [Concomitant]
     Active Substance: VALACYCLOVIR HYDROCHLORIDE
     Dosage: 500 MILLIGRAM, 2D1T
     Dates: start: 20181026
  11. XGEVA [Suspect]
     Active Substance: DENOSUMAB
     Dosage: UNK
     Route: 065
  12. LENALIDOMIDE [Concomitant]
     Active Substance: LENALIDOMIDE
     Dosage: 10 MILLIGRAM, 1D1T 3W1C
     Dates: start: 20190225
  13. HYPROMELLOSE [Concomitant]
     Active Substance: HYPROMELLOSES
     Dosage: 3 MILLIGRAM PER MILLILITRE
  14. DOXYCYCLINE. [Concomitant]
     Active Substance: DOXYCYCLINE
     Dosage: 100 MILLIGRAM
  15. TRIAMCINOLONACETONIDE [Concomitant]
     Active Substance: TRIAMCINOLONE ACETONIDE
     Dosage: INJSUSP 40MG/ML FL 1ML (PAR) UNK.

REACTIONS (6)
  - Musculoskeletal stiffness [Not Recovered/Not Resolved]
  - Dental care [Unknown]
  - Respiratory tract infection [Recovered/Resolved]
  - Osteitis [Unknown]
  - Joint stiffness [Unknown]
  - Myalgia [Recovered/Resolved]

NARRATIVE: CASE EVENT DATE: 20190703
